FAERS Safety Report 19447641 (Version 1)
Quarter: 2021Q2

REPORT INFORMATION
  Report Type: Spontaneous
  Country: US (occurrence: US)
  Receive Date: 20210621
  Receipt Date: 20210621
  Transmission Date: 20210717
  Serious: No
  Sender: FDA-Public Use
  Company Number: None

PATIENT
  Age: 24 Year
  Sex: Male

DRUGS (1)
  1. QSYMIA [Suspect]
     Active Substance: PHENTERMINE HYDROCHLORIDE\TOPIRAMATE
     Indication: OBESITY
     Dosage: ?          OTHER DOSE:7.5MG/46MG;?
     Route: 048
     Dates: start: 20210423, end: 20210608

REACTIONS (5)
  - Intrusive thoughts [None]
  - Dizziness [None]
  - Anxiety [None]
  - Paraesthesia [None]
  - Negative thoughts [None]

NARRATIVE: CASE EVENT DATE: 20210608
